FAERS Safety Report 9605331 (Version 1)
Quarter: 2013Q4

REPORT INFORMATION
  Report Type: Report from Study
  Country: US (occurrence: US)
  Receive Date: 20131008
  Receipt Date: 20131008
  Transmission Date: 20140711
  Serious: Yes (Death)
  Sender: FDA-Public Use
  Company Number: US-BAXTER-2013BAX039517

PATIENT
  Sex: 0

DRUGS (10)
  1. CYTOXAN TABLETS (CYCLOPHOSPHAMIDE TABLETS, USP) [Suspect]
     Indication: VASCULITIS
     Dosage: FOR 3-6 MONTHS
     Route: 048
  2. CYTOXAN TABLETS (CYCLOPHOSPHAMIDE TABLETS, USP) [Suspect]
     Indication: ANTINEUTROPHIL CYTOPLASMIC ANTIBODY POSITIVE
  3. RITUXIMAB [Suspect]
     Indication: VASCULITIS
     Route: 042
  4. RITUXIMAB [Suspect]
     Indication: ANTINEUTROPHIL CYTOPLASMIC ANTIBODY POSITIVE
  5. AZATHIOPRINE [Suspect]
     Indication: VASCULITIS
     Route: 065
  6. AZATHIOPRINE [Suspect]
     Indication: ANTINEUTROPHIL CYTOPLASMIC ANTIBODY POSITIVE
  7. METHYLPREDNISOLONE [Suspect]
     Indication: VASCULITIS
     Dosage: UP TO 3 GRAMS
     Route: 042
  8. METHYLPREDNISOLONE [Suspect]
     Indication: ANTINEUTROPHIL CYTOPLASMIC ANTIBODY POSITIVE
  9. PREDNISONE [Suspect]
     Indication: VASCULITIS
     Route: 065
  10. PREDNISONE [Suspect]
     Indication: ANTINEUTROPHIL CYTOPLASMIC ANTIBODY POSITIVE

REACTIONS (1)
  - Pneumonia [Fatal]
